FAERS Safety Report 10055169 (Version 1)
Quarter: 2014Q2

REPORT INFORMATION
  Report Type: Spontaneous
  Country: US (occurrence: US)
  Receive Date: 20140402
  Receipt Date: 20140402
  Transmission Date: 20141212
  Serious: Yes (Other)
  Sender: FDA-Public Use
  Company Number: US-JNJFOC-20140318156

PATIENT
  Sex: Female

DRUGS (3)
  1. NICOTINE POLACRILEX [Suspect]
     Indication: SMOKING CESSATION THERAPY
     Route: 002
  2. NICODERM CQ [Suspect]
     Indication: SMOKING CESSATION THERAPY
     Route: 062
  3. ANTI-HYPERTENSIVE [Concomitant]
     Indication: PRODUCT USED FOR UNKNOWN INDICATION
     Route: 065

REACTIONS (3)
  - Cerebrovascular accident [Unknown]
  - Blood pressure increased [Unknown]
  - Drug administration error [Unknown]
